FAERS Safety Report 15049708 (Version 1)
Quarter: 2018Q2

REPORT INFORMATION
  Report Type: Spontaneous
  Country: US (occurrence: US)
  Receive Date: 20180622
  Receipt Date: 20180622
  Transmission Date: 20180711
  Serious: No
  Sender: FDA-Public Use
  Company Number: US-ADAMAS PHARMA, LLC-2018ADA00696

PATIENT
  Age: 76 Year
  Sex: Female

DRUGS (5)
  1. GOCOVRI [Suspect]
     Active Substance: AMANTADINE
     Dosage: 274 MG, 1X/DAY
     Route: 048
     Dates: start: 20180424, end: 201804
  2. MIDODRINE [Concomitant]
     Active Substance: MIDODRINE
  3. GOCOVRI [Suspect]
     Active Substance: AMANTADINE
     Indication: DYSKINESIA
     Dosage: 137 MG, 1X/DAY
     Route: 048
     Dates: start: 20180417, end: 20180423
  4. GOCOVRI [Suspect]
     Active Substance: AMANTADINE
     Dosage: 137 MG, 1X/DAY
     Route: 048
     Dates: start: 201804, end: 20180427
  5. CARBIDOPA; LEVODOPA [Concomitant]

REACTIONS (4)
  - Psychomotor hyperactivity [Recovered/Resolved]
  - Dyskinesia [Recovered/Resolved]
  - Insomnia [Not Recovered/Not Resolved]
  - Hallucination [Not Recovered/Not Resolved]

NARRATIVE: CASE EVENT DATE: 20180424
